FAERS Safety Report 9825801 (Version 2)
Quarter: 2014Q1

REPORT INFORMATION
  Report Type: Report from Study
  Country: CA (occurrence: CA)
  Receive Date: 20140117
  Receipt Date: 20140117
  Transmission Date: 20141002
  Serious: Yes (Other)
  Sender: FDA-Public Use
  Company Number: CA-BAYER-2013-125690

PATIENT
  Age: 75 Year
  Sex: Female

DRUGS (2)
  1. STIVARGA/ REGORAFENIB [Suspect]
     Indication: COLORECTAL CANCER
     Dosage: 120 MG, QD
     Route: 048
     Dates: start: 20131003, end: 20131015
  2. STIVARGA/ REGORAFENIB [Suspect]
     Indication: COLORECTAL CANCER
     Dosage: 120 MG, QD
     Route: 048
     Dates: start: 201310

REACTIONS (10)
  - Rash generalised [None]
  - Hepatic enzyme increased [None]
  - Blood pressure diastolic increased [None]
  - Dry mouth [None]
  - Fatigue [None]
  - Balance disorder [None]
  - Mobility decreased [None]
  - Dry throat [Not Recovered/Not Resolved]
  - Dysphonia [None]
  - Decreased appetite [None]
